FAERS Safety Report 15932799 (Version 1)
Quarter: 2019Q1

REPORT INFORMATION
  Report Type: Spontaneous
  Country: FR (occurrence: FR)
  Receive Date: 20190207
  Receipt Date: 20190207
  Transmission Date: 20190417
  Serious: Yes (Death)
  Sender: FDA-Public Use
  Company Number: FR-MYLANLABS-2018M1002886

PATIENT

DRUGS (11)
  1. CISPLATIN. [Suspect]
     Active Substance: CISPLATIN
     Indication: OSTEOSARCOMA
     Dosage: 120 MG/M2, QD, (OVER 4 H IN 250 ML SALINE SERUM ONCE ON DAY TWO AFTER THE END OF DOXORUBICIN)
     Route: 042
  2. ZOLEDRONIC ACID [Suspect]
     Active Substance: ZOLEDRONIC ACID
     Indication: OSTEOSARCOMA
     Dosage: 10 DF, MONTHLY,10 MONTHLY INTRAVENOUS INFUSIONS DURING THE PRE AND POST
     Route: 042
  3. IFOSFAMIDE. [Suspect]
     Active Substance: IFOSFAMIDE
     Indication: OSTEOSARCOMA
     Dosage: OVER 3 H IN 250-500 ML IN SALINE SERUM FOR 4 DAYS
     Route: 042
  4. CYCLOPHOSPHAMIDE. [Suspect]
     Active Substance: CYCLOPHOSPHAMIDE
     Indication: OSTEOSARCOMA
     Dosage: UNK
     Route: 065
  5. ETOPOSIDE. [Suspect]
     Active Substance: ETOPOSIDE
     Indication: OSTEOSARCOMA
     Dosage: OVER 1 H IN 250-500 ML SALINE SERUM FOR 4 DAYS)
     Route: 042
  6. FOLINIC ACID [Suspect]
     Active Substance: LEUCOVORIN
     Indication: OSTEOSARCOMA
     Dosage: 15 MG, UNK,(20H AFTER 15MG MTX INFUSION UP TO AT LEAST 11 DOSES EVERY 6H
     Route: 048
  7. FOLINIC ACID [Suspect]
     Active Substance: LEUCOVORIN
     Indication: OSTEOSARCOMA
     Dosage: 15 MILLIGRAM,15 MG, UNK,(20H AFTER 15MG MTX INFUSION UP TO AT LEAST 11 DOSES EVERY 6H
     Route: 042
  8. DOXORUBICIN [Suspect]
     Active Substance: DOXORUBICIN
     Indication: OSTEOSARCOMA
     Dosage: 37.5 MG/M2, QD,OVER 6 H IN 250 ML 5% GLUCOSE WAS GIVEN DAILY
     Route: 042
  9. MESNA. [Suspect]
     Active Substance: MESNA
     Indication: OSTEOSARCOMA
     Dosage: 3600 MG/M2, QD,(CONTINUOUS INFUSION)
     Route: 041
  10. CARBOPLATIN. [Suspect]
     Active Substance: CARBOPLATIN
     Indication: OSTEOSARCOMA
     Dosage: UNK
     Route: 065
  11. METHOTREXATE. [Suspect]
     Active Substance: METHOTREXATE
     Indication: OSTEOSARCOMA
     Dosage: IN 1L OF 5% DEXTROSE IN WATER WITH 1MEQ/KG OF SODIUM BICARBONATE ADMINISTERED AS 4H INFUSION
     Route: 041

REACTIONS (1)
  - Toxicity to various agents [Fatal]
